FAERS Safety Report 17474593 (Version 1)
Quarter: 2020Q1

REPORT INFORMATION
  Report Type: Spontaneous
  Country: US (occurrence: US)
  Receive Date: 20200228
  Receipt Date: 20200228
  Transmission Date: 20200409
  Serious: Yes (Death)
  Sender: FDA-Public Use
  Company Number: None

PATIENT
  Age: 54 Year
  Sex: Female
  Weight: 56 kg

DRUGS (11)
  1. AVASTIN [Concomitant]
     Active Substance: BEVACIZUMAB
     Dates: end: 20190529
  2. FAMOTIDINE IV [Concomitant]
  3. FOSAPREPITANT [Concomitant]
     Active Substance: FOSAPREPITANT
  4. PALONOSETRON. [Suspect]
     Active Substance: PALONOSETRON HYDROCHLORIDE
     Dosage: ?          OTHER FREQUENCY:Q28DAYS;?
     Route: 042
  5. PACITAXEL [Concomitant]
     Active Substance: PACLITAXEL
  6. DEXAMETHASONE IV [Concomitant]
     Active Substance: DEXAMETHASONE
     Dates: end: 20190524
  7. DIPHENHYDRAMINE  IV [Concomitant]
  8. PACLITAXEL. [Concomitant]
     Active Substance: PACLITAXEL
  9. EMEND [Concomitant]
     Active Substance: APREPITANT
  10. CARBOPLATIN. [Concomitant]
     Active Substance: CARBOPLATIN
     Dates: end: 20190208
  11. DOXORUBICIN [Concomitant]
     Active Substance: DOXORUBICIN

REACTIONS (1)
  - Death [None]
